FAERS Safety Report 10590208 (Version 2)
Quarter: 2016Q1

REPORT INFORMATION
  Report Type: Spontaneous
  Country: US (occurrence: US)
  Receive Date: 20141118
  Receipt Date: 20160224
  Transmission Date: 20160525
  Serious: No
  Sender: FDA-Public Use
  Company Number: US-PFIZER INC-2014315437

PATIENT
  Age: 47 Year
  Sex: Female

DRUGS (1)
  1. LYRICA [Suspect]
     Active Substance: PREGABALIN
     Indication: COMPLEX REGIONAL PAIN SYNDROME
     Dosage: 200 MG CAPSULE IN AM, ONE 200 MG MIDDAY, AND TWO 200 MG CAPSULES AT NIGHT

REACTIONS (6)
  - Malaise [Unknown]
  - Drug withdrawal syndrome [Unknown]
  - Poor quality sleep [Not Recovered/Not Resolved]
  - Weight increased [Not Recovered/Not Resolved]
  - Eye disorder [Not Recovered/Not Resolved]
  - Hunger [Not Recovered/Not Resolved]
